FAERS Safety Report 4465013-2 (Version None)
Quarter: 2004Q4

REPORT INFORMATION
  Report Type: 
  Country: None (occurrence: None)
  Receive Date: 20041004
  Receipt Date: 20040623
  Transmission Date: 20050328
  Serious: No
  Sender: FDA-Public Use
  Company Number: 374017

PATIENT
  Age: 64 Year
  Sex: Female

DRUGS (4)
  1. COREG [Suspect]
     Dosage: 25MG TWICE PER DAY
     Route: 048
     Dates: start: 20040301
  2. PENTASA [Concomitant]
     Dosage: 1000MG THREE TIMES PER DAY
     Route: 048
     Dates: start: 20030701
  3. LISINOPRIL [Concomitant]
     Dosage: 20MG PER DAY
     Route: 048
     Dates: start: 20040301
  4. SPIRONOLACTONE [Concomitant]
     Dosage: 50MG PER DAY
     Route: 048
     Dates: start: 20040601

REACTIONS (1)
  - DRUG INEFFECTIVE [None]
